FAERS Safety Report 8663445 (Version 3)
Quarter: 2012Q4

REPORT INFORMATION
  Report Type: Report from Study
  Country: IS (occurrence: IS)
  Receive Date: 20120713
  Receipt Date: 20121012
  Transmission Date: 20130627
  Serious: Yes (Death, Life-Threatening, Hospitalization, Other)
  Sender: FDA-Public Use
  Company Number: IS-PFIZER INC-2012163496

PATIENT
  Age: 55 Year
  Sex: Female

DRUGS (7)
  1. INLYTA [Suspect]
     Indication: RENAL CANCER METASTATIC
     Dosage: 5 mg, 2x/day
     Route: 048
     Dates: start: 20120626, end: 20120705
  2. IMOVANE [Concomitant]
     Dosage: UNK
     Dates: end: 20120705
  3. PARIET [Concomitant]
     Dosage: UNK
     Dates: end: 20120705
  4. SOTALOL [Concomitant]
     Dosage: UNK
     Dates: end: 20120705
  5. FLORINEF [Concomitant]
     Dosage: UNK
     Dates: end: 20120705
  6. PREDNISOLON [Concomitant]
     Dosage: UNK
     Dates: end: 20120705
  7. SEROTAX [Concomitant]
     Dosage: UNK
     Dates: end: 20120705

REACTIONS (4)
  - Intracranial aneurysm [Fatal]
  - Aneurysm ruptured [Fatal]
  - Subarachnoid haemorrhage [Fatal]
  - Haemorrhage intracranial [Fatal]
